FAERS Safety Report 20323587 (Version 1)
Quarter: 2022Q1

REPORT INFORMATION
  Report Type: Spontaneous
  Country: US (occurrence: None)
  Receive Date: 20220111
  Receipt Date: 20220111
  Transmission Date: 20220424
  Serious: No
  Sender: FDA-Public Use
  Company Number: None

PATIENT
  Sex: Female
  Weight: 97.98 kg

DRUGS (10)
  1. TASIGNA [Suspect]
     Active Substance: NILOTINIB
     Indication: Chronic myeloid leukaemia
     Dosage: FREQUENCY : EVERY OTHER DAY;?
     Route: 048
  2. ALLOPURINOL [Concomitant]
     Active Substance: ALLOPURINOL
  3. CARVEDILOL [Concomitant]
     Active Substance: CARVEDILOL
  4. FERROUS SULFATE [Concomitant]
     Active Substance: FERROUS SULFATE
  5. LAMOTRIGINE [Concomitant]
     Active Substance: LAMOTRIGINE
  6. XARELTO [Concomitant]
     Active Substance: RIVAROXABAN
  7. TYLENOL WITH CODEINE [Concomitant]
     Active Substance: ACETAMINOPHEN\CODEINE PHOSPHATE
  8. LEVALBUTEROL [Concomitant]
     Active Substance: LEVALBUTEROL
  9. IRBESARTAN [Concomitant]
     Active Substance: IRBESARTAN
  10. FUROSEMIDE [Concomitant]
     Active Substance: FUROSEMIDE

REACTIONS (4)
  - Eye pain [None]
  - Tremor [None]
  - Back pain [None]
  - Palpitations [None]
